FAERS Safety Report 7505745-2 (Version None)
Quarter: 2011Q2

REPORT INFORMATION
  Report Type: 
  Country: None (occurrence: None)
  Receive Date: 20110526
  Receipt Date: 20110519
  Transmission Date: 20111010
  Serious: Yes (Hospitalization, Other)
  Sender: FDA-Public Use
  Company Number: JP-PFIZER INC-2010082924

PATIENT
  Sex: Male
  Weight: 61 kg

DRUGS (8)
  1. CELECOXIB [Concomitant]
     Indication: ANALGESIC THERAPY
     Dosage: 200 MG, 2X/DAY
     Dates: start: 20080331
  2. ALENDRONATE SODIUM [Concomitant]
     Indication: OSTEOPOROSIS
     Dosage: 35 MG, 1X/DAY
     Route: 048
     Dates: start: 20100425
  3. PREDNISOLONE [Suspect]
     Indication: INFLAMMATION
     Dosage: 5 MG DAILY
     Route: 048
     Dates: start: 20080101
  4. LANSOPRAZOLE [Concomitant]
     Indication: GASTRIC ULCER
     Dosage: 15 MG, 2X/DAY
     Route: 048
     Dates: start: 20080331
  5. ROCALTROL [Concomitant]
     Indication: OSTEOPOROSIS PROPHYLAXIS
     Dosage: 0.25 UG, 2X/DAY
     Route: 048
     Dates: start: 20080331
  6. ISONIAZID [Concomitant]
     Indication: TUBERCULOSIS
     Dosage: 3 TABLETS PER DAY
  7. AZULFIDINE [Suspect]
     Indication: MUSCULOSKELETAL PAIN
     Dosage: 250 MG, 2X/DAY
     Route: 048
     Dates: start: 20080331
  8. ETANERCEPT [Suspect]
     Indication: RHEUMATOID ARTHRITIS
     Dosage: 25 MG, 2X/WEEK
     Route: 058
     Dates: start: 20080711

REACTIONS (2)
  - HERPES ZOSTER [None]
  - POST HERPETIC NEURALGIA [None]
